FAERS Safety Report 11940213 (Version 1)
Quarter: 2016Q1

REPORT INFORMATION
  Report Type: Spontaneous
  Country: US (occurrence: US)
  Receive Date: 20160122
  Receipt Date: 20160122
  Transmission Date: 20160526
  Serious: Yes (Hospitalization, Other)
  Sender: FDA-Public Use
  Company Number: US-DSJP-DSU-2015-120127

PATIENT

DRUGS (2)
  1. BENICAR HCT [Suspect]
     Active Substance: HYDROCHLOROTHIAZIDE\OLMESARTAN MEDOXOMIL
     Dosage: 40/25MG, UNK
     Dates: start: 20091115
  2. BENICAR HCT [Suspect]
     Active Substance: HYDROCHLOROTHIAZIDE\OLMESARTAN MEDOXOMIL
     Indication: HYPERTENSION
     Dosage: 20/12.5MG, UNK
     Dates: start: 2002, end: 2012

REACTIONS (20)
  - Chest pain [Unknown]
  - Malabsorption [Unknown]
  - Renal failure [Unknown]
  - Dysphagia [Unknown]
  - Hepatic steatosis [Unknown]
  - Gastrooesophageal reflux disease [Unknown]
  - Gastroenteritis [Unknown]
  - Small intestinal bacterial overgrowth [Unknown]
  - Large intestine polyp [Unknown]
  - Inflammatory bowel disease [Unknown]
  - Gastrooesophageal reflux disease [Unknown]
  - Haemorrhoids [Unknown]
  - Unevaluable event [Unknown]
  - Irritable bowel syndrome [Unknown]
  - Hepatomegaly [Unknown]
  - Constipation [Unknown]
  - Gastrointestinal haemorrhage [Unknown]
  - Hiatus hernia [Unknown]
  - Reactive gastropathy [Unknown]
  - Laparoscopic surgery [Unknown]

NARRATIVE: CASE EVENT DATE: 20081221
